FAERS Safety Report 5429504-X (Version None)
Quarter: 2007Q3

REPORT INFORMATION
  Report Type: 
  Country: None (occurrence: None)
  Receive Date: 20070829
  Receipt Date: 20070823
  Transmission Date: 20080115
  Serious: Yes (Other)
  Sender: FDA-Public Use
  Company Number: D0054362A

PATIENT

DRUGS (1)
  1. TAGONIS [Suspect]
     Route: 048

REACTIONS (5)
  - CEREBRAL HAEMORRHAGE [None]
  - CEREBRAL INFARCTION [None]
  - CONVULSION [None]
  - DELIVERY [None]
  - DRUG EXPOSURE DURING PREGNANCY [None]
